FAERS Safety Report 8082552-6 (Version None)
Quarter: 2012Q1

REPORT INFORMATION
  Report Type: 
  Country: None (occurrence: None)
  Receive Date: 20120127
  Receipt Date: 20110221
  Transmission Date: 20120608
  Serious: No
  Sender: FDA-Public Use
  Company Number: US-ABBOTT-11P-163-0706785-00

PATIENT
  Age: 64 Year
  Sex: Female

DRUGS (8)
  1. BENICAR [Concomitant]
     Indication: BLOOD PRESSURE
  2. MELOXICAM [Concomitant]
     Indication: ARTHRALGIA
  3. HUMIRA [Suspect]
     Indication: RHEUMATOID ARTHRITIS
     Dates: start: 20100401, end: 20101201
  4. PREDNISONE TAB [Concomitant]
     Indication: PRODUCT USED FOR UNKNOWN INDICATION
     Dosage: 5 MG EVERY OTHER DAY
  5. VYTORIN [Concomitant]
     Indication: BLOOD CHOLESTEROL ABNORMAL
  6. HUMIRA [Suspect]
     Dates: start: 20101201
  7. METOPROLOL TARTRATE [Concomitant]
     Indication: BLOOD PRESSURE
     Dosage: 100 MG DAILY
  8. MELOXICAM [Concomitant]
     Indication: JOINT SWELLING

REACTIONS (4)
  - PAIN [None]
  - DEVICE MALFUNCTION [None]
  - INJECTION SITE PAIN [None]
  - RHEUMATOID ARTHRITIS [None]
